FAERS Safety Report 5063381-4 (Version None)
Quarter: 2006Q3

REPORT INFORMATION
  Report Type: 
  Country: None (occurrence: None)
  Receive Date: 20060724
  Receipt Date: 20060713
  Transmission Date: 20061208
  Serious: Yes (Hospitalization, Other)
  Sender: FDA-Public Use
  Company Number: 2006-05-1507

PATIENT
  Age: 55 Year
  Sex: Male
  Weight: 75 kg

DRUGS (9)
  1. PEG-INTERFERON ALFA-2B INJECTABLE [Suspect]
     Indication: HEPATITIS C
     Dosage: 120 MCG QWK SUBCUTANEOUS
     Route: 058
     Dates: start: 20051028, end: 20060508
  2. PEG-INTERFERON ALFA-2B INJECTABLE [Suspect]
     Indication: HEPATITIS C
     Dosage: 120 MCG QWK SUBCUTANEOUS
     Route: 058
     Dates: start: 20051028
  3. PEG-INTERFERON ALFA-2B INJECTABLE [Suspect]
     Indication: HEPATITIS C
     Dosage: 120 MCG QWK SUBCUTANEOUS
     Route: 058
     Dates: start: 20060522
  4. RIBAVIRIN [Suspect]
     Indication: HEPATITIS C
     Dosage: 1000 MG QD ORAL
     Route: 048
     Dates: start: 20051028, end: 20060508
  5. RIBAVIRIN [Suspect]
     Indication: HEPATITIS C
     Dosage: 1000 MG QD ORAL
     Route: 048
     Dates: start: 20051028
  6. RIBAVIRIN [Suspect]
     Indication: HEPATITIS C
     Dosage: 1000 MG QD ORAL
     Route: 048
     Dates: start: 20060522
  7. EPREX [Suspect]
     Indication: HAEMOLYTIC ANAEMIA
     Dosage: SEE IMAGE
     Route: 058
     Dates: start: 20060521, end: 20060704
  8. EPREX [Suspect]
     Indication: HAEMOLYTIC ANAEMIA
     Dosage: SEE IMAGE
     Route: 058
     Dates: start: 20060301
  9. EPREX [Suspect]
     Indication: HAEMOLYTIC ANAEMIA
     Dosage: SEE IMAGE
     Route: 058
     Dates: start: 20060711

REACTIONS (5)
  - CHEST PAIN [None]
  - HAEMOLYTIC ANAEMIA [None]
  - ORTHOSTATIC HYPOTENSION [None]
  - SPLENIC INFARCTION [None]
  - TRANSIENT ISCHAEMIC ATTACK [None]
